FAERS Safety Report 7121595-3 (Version None)
Quarter: 2010Q4

REPORT INFORMATION
  Report Type: 
  Country: None (occurrence: None)
  Receive Date: 20101124
  Receipt Date: 20101110
  Transmission Date: 20110411
  Serious: Yes (Hospitalization, Other)
  Sender: FDA-Public Use
  Company Number: US-ELI_LILLY_AND_COMPANY-US201009005639

PATIENT
  Sex: Female

DRUGS (11)
  1. FORTEO [Suspect]
     Indication: OSTEOPOROSIS
     Dosage: 20 UG, DAILY (1/D)
     Dates: start: 20100821
  2. WARFARIN [Concomitant]
     Dosage: 4 MG, UNK
  3. SPIRONOLACTONE [Concomitant]
     Dosage: UNK, ONE TABLET EVERY OTHER EVENING
  4. AMLODIPINE [Concomitant]
     Dosage: 5 MG, UNK
  5. TOPROL-XL [Concomitant]
     Dosage: 25 MG, UNK
  6. VITAMIN D [Concomitant]
  7. MULTI-VITAMIN [Concomitant]
  8. CALCIUM [Concomitant]
  9. VITAMIN B [Concomitant]
  10. ASCORBIC ACID [Concomitant]
  11. OMEPRAZOLE [Concomitant]

REACTIONS (5)
  - CARDIAC FAILURE CONGESTIVE [None]
  - FATIGUE [None]
  - HEART RATE DECREASED [None]
  - HOSPITALISATION [None]
  - LOSS OF CONSCIOUSNESS [None]
